FAERS Safety Report 10085443 (Version 1)
Quarter: 2014Q2

REPORT INFORMATION
  Report Type: Spontaneous
  Country: BR (occurrence: BR)
  Receive Date: 20140418
  Receipt Date: 20140418
  Transmission Date: 20141212
  Serious: Yes (Hospitalization)
  Sender: FDA-Public Use
  Company Number: BR-BIOGENIDEC-2014BI035096

PATIENT
  Age: 27 Year
  Sex: Male

DRUGS (2)
  1. AVONEX [Suspect]
     Indication: MULTIPLE SCLEROSIS
     Route: 030
     Dates: start: 200909
  2. AVONEX [Suspect]
     Indication: MULTIPLE SCLEROSIS
     Route: 030
     Dates: start: 201211

REACTIONS (4)
  - Inguinal hernia [Unknown]
  - Balance disorder [Not Recovered/Not Resolved]
  - Hypoaesthesia [Recovered/Resolved]
  - Muscular weakness [Not Recovered/Not Resolved]
